FAERS Safety Report 5087992-5 (Version None)
Quarter: 2006Q3

REPORT INFORMATION
  Report Type: 
  Country: None (occurrence: None)
  Receive Date: 20060823
  Receipt Date: 20060823
  Transmission Date: 20061208
  Serious: Yes (Hospitalization)
  Sender: FDA-Public Use
  Company Number: None

PATIENT
  Age: 40 Year
  Sex: Male

DRUGS (4)
  1. WARFARIN SODIUM [Suspect]
     Indication: ANTICOAGULANT THERAPY
     Dosage: 15 MG PO DAILY OR BID
     Route: 048
     Dates: start: 20060421
  2. PERGABALIN [Concomitant]
  3. VITAMINS [Concomitant]
  4. ZOLOFT [Concomitant]

REACTIONS (4)
  - ABDOMINAL PAIN [None]
  - COAGULOPATHY [None]
  - HAEMATURIA [None]
  - MELAENA [None]
